FAERS Safety Report 6008904-3 (Version None)
Quarter: 2008Q4

REPORT INFORMATION
  Report Type: 
  Country: None (occurrence: None)
  Receive Date: 20081216
  Receipt Date: 20081201
  Transmission Date: 20090506
  Serious: Yes (Other)
  Sender: FDA-Public Use
  Company Number: 2008S1021406

PATIENT
  Age: 49 Year
  Sex: Female

DRUGS (3)
  1. FENTANYL TRANSDERMAL SYSTEM [Suspect]
     Indication: PAIN
     Dosage: 25 UG; EVERY HOUR; TRANSDERMAL
     Route: 062
     Dates: start: 20081112, end: 20081128
  2. NORCO [Concomitant]
  3. DILAUDID [Concomitant]

REACTIONS (2)
  - DEVICE INEFFECTIVE [None]
  - PRODUCT QUALITY ISSUE [None]
